FAERS Safety Report 6684827-1 (Version None)
Quarter: 2010Q2

REPORT INFORMATION
  Report Type: 
  Country: None (occurrence: None)
  Receive Date: 20100416
  Receipt Date: 20100413
  Transmission Date: 20101027
  Serious: Yes (Other)
  Sender: FDA-Public Use
  Company Number: US-ELI_LILLY_AND_COMPANY-US201003001554

PATIENT
  Sex: Male

DRUGS (2)
  1. HUMALOG [Suspect]
     Indication: TYPE 2 DIABETES MELLITUS
     Dosage: 15 U, 3/D
     Dates: start: 20090301
  2. LANTUS [Concomitant]
     Dosage: 35 U, EACH EVENING
     Dates: start: 20090101

REACTIONS (1)
  - ISCHAEMIC STROKE [None]
